FAERS Safety Report 4297372-8 (Version None)
Quarter: 2004Q1

REPORT INFORMATION
  Report Type: 
  Country: None (occurrence: None)
  Receive Date: 20040213
  Receipt Date: 20040204
  Transmission Date: 20041129
  Serious: Yes (Other)
  Sender: FDA-Public Use
  Company Number: FRWYE471418DEC03

PATIENT
  Age: 63 Year
  Sex: Female

DRUGS (10)
  1. EFFEXOR XR [Suspect]
     Indication: DEPRESSION
     Dosage: 37.5 MG 4X PER 1 DAY, ORAL; 37.5 MG 3X PER 1 DAY, ORAL
     Route: 048
     Dates: end: 20031201
  2. EFFEXOR XR [Suspect]
     Indication: DEPRESSION
     Dosage: 37.5 MG 4X PER 1 DAY, ORAL; 37.5 MG 3X PER 1 DAY, ORAL
     Route: 048
     Dates: start: 20031201
  3. SINTROM [Suspect]
     Dosage: 4 MG 4 TIMES PER 7 DAYS AND 3 MG 3 TIMES PER 7 DAYS, ORAL
     Route: 048
  4. CORVASAL (MOLSIDOMINE) [Concomitant]
  5. CLONAZEPAM [Concomitant]
  6. DIAFUSOR (GLYCERYL TRINITRATE) [Concomitant]
  7. LASIX [Concomitant]
  8. OGAST (LANSOPRAZOLE) [Concomitant]
  9. POTASSIUM CHLORIDE [Concomitant]
  10. TRAMADOL (TRAMADOL) [Concomitant]

REACTIONS (3)
  - DRUG INTERACTION [None]
  - INTERNATIONAL NORMALISED RATIO INCREASED [None]
  - PULMONARY EMBOLISM [None]
